FAERS Safety Report 15852129 (Version 1)
Quarter: 2019Q1

REPORT INFORMATION
  Report Type: Spontaneous
  Country: US (occurrence: US)
  Receive Date: 20190122
  Receipt Date: 20190122
  Transmission Date: 20190417
  Serious: Yes (Other)
  Sender: FDA-Public Use
  Company Number: US-SAKK-2019SA013133AA

PATIENT
  Age: 37 Year
  Sex: Male

DRUGS (1)
  1. DUPIXENT [Suspect]
     Active Substance: DUPILUMAB
     Indication: DERMATITIS ATOPIC
     Dosage: UNK

REACTIONS (8)
  - Conjunctival hyperaemia [Recovered/Resolved]
  - Conjunctivitis [Recovered/Resolved]
  - Blepharitis [Recovered/Resolved]
  - Eye irritation [Recovered/Resolved]
  - Eyelid thickening [Recovered/Resolved]
  - Ocular surface disease [Recovered/Resolved]
  - Ocular hyperaemia [Recovered/Resolved]
  - Eyelid oedema [Recovered/Resolved]
